FAERS Safety Report 4796402-4 (Version None)
Quarter: 2005Q4

REPORT INFORMATION
  Report Type: 
  Country: None (occurrence: None)
  Receive Date: 20051007
  Receipt Date: 20050928
  Transmission Date: 20060501
  Serious: Yes (Life-Threatening, Hospitalization)
  Sender: FDA-Public Use
  Company Number: 2005-09-1405

PATIENT
  Age: 12 Year
  Sex: Male
  Weight: 42 kg

DRUGS (1)
  1. LORATADINE [Suspect]
     Indication: ALLERGY TO ARTHROPOD STING
     Dosage: 10 MG QD ORAL
     Route: 048
     Dates: start: 20050623, end: 20050623

REACTIONS (3)
  - ANGIONEUROTIC OEDEMA [None]
  - HYPERSENSITIVITY [None]
  - SINUSITIS [None]
